FAERS Safety Report 8119640-1 (Version None)
Quarter: 2012Q1

REPORT INFORMATION
  Report Type: 
  Country: None (occurrence: None)
  Receive Date: 20120207
  Receipt Date: 20120123
  Transmission Date: 20120608
  Serious: Yes (Other)
  Sender: FDA-Public Use
  Company Number: TW-JHP PHARMACEUTICALS, LLC-JHP201200069

PATIENT
  Age: 22 Year
  Sex: Male

DRUGS (1)
  1. KETALAR [Suspect]
     Indication: DRUG ABUSE
     Dosage: 7.5 G, DAILY

REACTIONS (2)
  - HYDRONEPHROSIS [None]
  - URINARY TRACT DISORDER [None]
